FAERS Safety Report 7063422-9 (Version None)
Quarter: 2010Q4

REPORT INFORMATION
  Report Type: 
  Country: None (occurrence: None)
  Receive Date: 20101026
  Receipt Date: 20100216
  Transmission Date: 20110411
  Serious: No
  Sender: FDA-Public Use
  Company Number: US-ABBOTT-10P-163-0626714-00

PATIENT
  Age: 27 Year
  Sex: Female
  Weight: 39.498 kg

DRUGS (4)
  1. LUPRON DEPOT [Suspect]
     Indication: ENDOMETRIOSIS
     Dates: start: 20100112, end: 20100216
  2. MEGACE [Concomitant]
     Indication: WEIGHT DECREASED
     Dates: start: 20090101
  3. CLONAZEPAM [Concomitant]
     Indication: ANXIETY
  4. ATIVAN [Concomitant]
     Indication: ANXIETY

REACTIONS (1)
  - WEIGHT DECREASED [None]
